FAERS Safety Report 24609226 (Version 5)
Quarter: 2025Q2

REPORT INFORMATION
  Report Type: Report from Study
  Country: JP (occurrence: JP)
  Receive Date: 20241112
  Receipt Date: 20250626
  Transmission Date: 20250716
  Serious: Yes (Other)
  Sender: EISAI
  Company Number: JP-Eisai-EC-2024-178285

PATIENT
  Age: 81 Year
  Sex: Female

DRUGS (5)
  1. LEQEMBI [Suspect]
     Active Substance: LECANEMAB-IRMB
     Indication: Cognitive disorder
     Dates: start: 20240829, end: 20241028
  2. ARICEPT [Concomitant]
     Active Substance: DONEPEZIL HYDROCHLORIDE
     Indication: Cognitive disorder
     Dosage: AFTER BREAKFAST ORAL MEDICATION CONTINUOUSLY HAD BEEN TAKEN SINCE BEFORE AT LEAST FEB/2024
  3. VILDAGLIPTIN [Concomitant]
     Active Substance: VILDAGLIPTIN
     Indication: Product used for unknown indication
     Dosage: AFTER BREAKFAST ORAL MEDICATION CONTINUOUSLY HAD BEEN TAKEN SINCE BEFORE AT LEAST FEB/2024
  4. ATORVASTATIN CALCIUM [Concomitant]
     Active Substance: ATORVASTATIN CALCIUM
     Indication: Product used for unknown indication
     Dosage: AFTER BREAKFAST ORAL MEDICATION CONTINUOUSLY HAD BEEN TAKEN SINCE BEFORE AT LEAST FEB/2024
  5. MICARDIS [Concomitant]
     Active Substance: TELMISARTAN
     Indication: Product used for unknown indication
     Dosage: AFTER BREAKFAST
     Dates: start: 20240402

REACTIONS (1)
  - Lacunar infarction [Not Recovered/Not Resolved]

NARRATIVE: CASE EVENT DATE: 20241105
